FAERS Safety Report 24755289 (Version 1)
Quarter: 2024Q4

REPORT INFORMATION
  Report Type: Spontaneous
  Country: PL (occurrence: PL)
  Receive Date: 20241219
  Receipt Date: 20241219
  Transmission Date: 20250114
  Serious: Yes (Hospitalization)
  Sender: NOVARTIS
  Company Number: PL-002147023-NVSC2024PL237907

PATIENT
  Age: 72 Year
  Sex: Female

DRUGS (11)
  1. NILOTINIB [Suspect]
     Active Substance: NILOTINIB
     Indication: Chronic myeloid leukaemia
     Dosage: 600 MG, QD (DAILY)
     Route: 065
     Dates: start: 20220811
  2. XARELTO [Concomitant]
     Active Substance: RIVAROXABAN
     Indication: Product used for unknown indication
     Dosage: 20 MG, QD (1-0-0)
     Route: 065
  3. PROPRANOLOL [Concomitant]
     Active Substance: PROPRANOLOL HYDROCHLORIDE
     Indication: Product used for unknown indication
     Dosage: 40 MG, TID (1-1-1)
     Route: 065
  4. LERCANIDIPINE [Concomitant]
     Active Substance: LERCANIDIPINE
     Indication: Product used for unknown indication
     Dosage: 20 MG, QD (1-0-0)
     Route: 065
  5. ALLOPURINOL [Concomitant]
     Active Substance: ALLOPURINOL
     Indication: Product used for unknown indication
     Dosage: 300 MG, QD (1-0-0)
     Route: 065
  6. LEVOTHYROXINE SODIUM [Concomitant]
     Active Substance: LEVOTHYROXINE SODIUM
     Indication: Product used for unknown indication
     Dosage: UNK (1-0-0)
     Route: 065
  7. Tulip [Concomitant]
     Indication: Product used for unknown indication
     Dosage: 40 MG, QD (0-0-1)
     Route: 065
  8. DIGOXIN [Concomitant]
     Active Substance: DIGOXIN
     Indication: Product used for unknown indication
     Dosage: 250 MG, QD (1-0-0)
     Route: 065
  9. HYDROXYUREA [Concomitant]
     Active Substance: HYDROXYUREA
     Indication: Product used for unknown indication
     Dosage: 1 G, QD (DAILY)
     Route: 065
     Dates: start: 20240812
  10. Daruph [Concomitant]
     Indication: Product used for unknown indication
     Dosage: 63 MG, QD (DAILY)
     Route: 065
     Dates: start: 20230830
  11. DASATINIB [Concomitant]
     Active Substance: DASATINIB
     Indication: Product used for unknown indication
     Dosage: UNK
     Route: 065

REACTIONS (17)
  - Sepsis [Unknown]
  - Leriche syndrome [Unknown]
  - Urinary tract infection bacterial [Unknown]
  - Acute kidney injury [Unknown]
  - Peripheral ischaemia [Unknown]
  - Intestinal ischaemia [Unknown]
  - Incision site impaired healing [Unknown]
  - Septic shock [Unknown]
  - Malnutrition [Unknown]
  - Mitral valve incompetence [Unknown]
  - Type 2 diabetes mellitus [Unknown]
  - Aortic aneurysm [Unknown]
  - Diverticulum [Unknown]
  - Psoriasis [Unknown]
  - Seborrhoeic dermatitis [Unknown]
  - Hypothyroidism [Unknown]
  - Therapy partial responder [Unknown]
